FAERS Safety Report 13209829 (Version 1)
Quarter: 2017Q1

REPORT INFORMATION
  Report Type: Spontaneous
  Country: US (occurrence: US)
  Receive Date: 20170209
  Receipt Date: 20170209
  Transmission Date: 20170428
  Serious: No
  Sender: FDA-Public Use
  Company Number: None

PATIENT
  Age: 35 Year
  Sex: Male

DRUGS (1)
  1. SPRYCEL [Suspect]
     Active Substance: DASATINIB

REACTIONS (4)
  - Fatigue [None]
  - Diarrhoea [None]
  - Weight decreased [None]
  - Depression [None]

NARRATIVE: CASE EVENT DATE: 20170204
